FAERS Safety Report 17692717 (Version 1)
Quarter: 2020Q2

REPORT INFORMATION
  Report Type: Report from Study
  Country: US (occurrence: US)
  Receive Date: 20200422
  Receipt Date: 20200422
  Transmission Date: 20200714
  Serious: Yes (Other)
  Sender: FDA-Public Use
  Company Number: US-VIIV HEALTHCARE LIMITED-US2020GSK067394

PATIENT
  Sex: Male

DRUGS (1)
  1. MARAVIROC [Suspect]
     Active Substance: MARAVIROC

REACTIONS (2)
  - Coronavirus infection [Recovering/Resolving]
  - Respiratory failure [Recovering/Resolving]
